FAERS Safety Report 8763840 (Version 2)
Quarter: 2012Q4

REPORT INFORMATION
  Report Type: 
  Country: AU (occurrence: AU)
  Receive Date: 20120831
  Receipt Date: 20120831
  Transmission Date: 20130627
  Serious: Yes (Other)
  Sender: FDA-Public Use
  Company Number: PHHY2010AU54968

PATIENT
  Age: 63 Year
  Sex: Male

DRUGS (1)
  1. GLIVEC [Suspect]
     Indication: CHRONIC MYELOID LEUKAEMIA
     Dosage: 400 mg
     Route: 048
     Dates: start: 2003

REACTIONS (3)
  - Blindness [Recovering/Resolving]
  - Cataract [Recovering/Resolving]
  - Eye haemorrhage [Recovering/Resolving]
